FAERS Safety Report 8811244 (Version 1)
Quarter: 2012Q4

REPORT INFORMATION
  Report Type: 
  Country: US (occurrence: US)
  Receive Date: 20120927
  Receipt Date: 20120927
  Transmission Date: 20130627
  Serious: Yes (Other)
  Sender: FDA-Public Use
  Company Number: PHEH2012US018550

PATIENT
  Sex: Male
  Weight: 2.09 kg

DRUGS (3)
  1. TEGRETOL [Suspect]
     Indication: EPILEPSY
     Dosage: 600 mg, (mother dose)
     Route: 064
  2. PRENATAL [Concomitant]
     Route: 064
  3. FOLIC ACID [Concomitant]
     Route: 064

REACTIONS (2)
  - Hernia [Unknown]
  - Exposure during pregnancy [Unknown]
